FAERS Safety Report 6574946-2 (Version None)
Quarter: 2010Q1

REPORT INFORMATION
  Report Type: 
  Country: None (occurrence: None)
  Receive Date: 20100209
  Receipt Date: 20100202
  Transmission Date: 20100710
  Serious: Yes (Life-Threatening, Hospitalization)
  Sender: FDA-Public Use
  Company Number: PHHY2010JP05354

PATIENT
  Age: 64 Year
  Sex: Male

DRUGS (4)
  1. LAMISIL [Suspect]
     Dosage: 125 MG, PER DAY
     Route: 048
     Dates: start: 20100114, end: 20100123
  2. LORCAM [Concomitant]
     Dosage: UNK
     Route: 048
     Dates: start: 20081017, end: 20100124
  3. EPENARD [Concomitant]
     Dosage: UNK
     Route: 048
     Dates: start: 20081017, end: 20100124
  4. CHANTIX [Concomitant]
     Dosage: UNK
     Route: 048
     Dates: start: 20090101, end: 20100124

REACTIONS (4)
  - HAEMATEMESIS [None]
  - HAEMOPTYSIS [None]
  - PULMONARY HAEMORRHAGE [None]
  - SURGERY [None]
